FAERS Safety Report 12720115 (Version 1)
Quarter: 2016Q3

REPORT INFORMATION
  Report Type: Spontaneous
  Country: US (occurrence: US)
  Receive Date: 20160907
  Receipt Date: 20160907
  Transmission Date: 20161109
  Serious: No
  Sender: FDA-Public Use
  Company Number: US-PFIZER INC-2016414743

PATIENT

DRUGS (1)
  1. SODIUM BICARBONATE. [Suspect]
     Active Substance: SODIUM BICARBONATE

REACTIONS (3)
  - Product container issue [Unknown]
  - Laceration [Unknown]
  - Occupational exposure to product [Unknown]

NARRATIVE: CASE EVENT DATE: 20160831
